FAERS Safety Report 9414842 (Version 1)
Quarter: 2013Q3

REPORT INFORMATION
  Report Type: Spontaneous
  Country: US (occurrence: US)
  Receive Date: 20130723
  Receipt Date: 20130723
  Transmission Date: 20140515
  Serious: No
  Sender: FDA-Public Use
  Company Number: US-TEVA-420561USA

PATIENT
  Age: 26 Year
  Sex: Female
  Weight: 103.06 kg

DRUGS (3)
  1. PARAGARD 380A [Suspect]
     Indication: CONTRACEPTION
     Dates: start: 20130308, end: 20130718
  2. NITROFURANTOIN [Concomitant]
  3. NAPROXEN [Concomitant]

REACTIONS (3)
  - Device expulsion [Recovered/Resolved]
  - Pelvic discomfort [Unknown]
  - Vulvovaginal pruritus [Unknown]
